FAERS Safety Report 19901293 (Version 2)
Quarter: 2021Q4

REPORT INFORMATION
  Report Type: Spontaneous
  Country: IT (occurrence: IT)
  Receive Date: 20210930
  Receipt Date: 20211011
  Transmission Date: 20220304
  Serious: Yes (Other)
  Sender: FDA-Public Use
  Company Number: None

PATIENT
  Age: 1 Year
  Sex: Female

DRUGS (9)
  1. CARBOPLATIN [Suspect]
     Active Substance: CARBOPLATIN
     Indication: Choroid plexus carcinoma
     Dosage: 206.5 MG, CYCLIC
     Route: 042
     Dates: start: 20201028, end: 20201029
  2. VEPESID [Suspect]
     Active Substance: ETOPOSIDE
     Indication: Choroid plexus carcinoma
     Dosage: 59 MG, CYCLIC
     Route: 042
     Dates: start: 20201027, end: 20201031
  3. GABAPENTIN [Concomitant]
     Active Substance: GABAPENTIN
     Dosage: 300 MG
     Route: 048
  4. TRIMETON [Concomitant]
     Active Substance: CHLORPHENIRAMINE MALEATE
     Dosage: 7 MG
     Route: 042
  5. ZOFRAN [Concomitant]
     Active Substance: ONDANSETRON HYDROCHLORIDE
     Dosage: 12 MG/M2
     Route: 042
  6. DECADRON [Concomitant]
     Active Substance: DEXAMETHASONE
     Dosage: 10 ML
     Route: 048
  7. OMEPRAZOLE [Concomitant]
     Active Substance: OMEPRAZOLE
     Dosage: 15 MG
     Route: 048
  8. VALPROATE SODIUM [Concomitant]
     Active Substance: VALPROATE SODIUM
     Dosage: 400 MG
     Route: 048
  9. CEFIXIME [Concomitant]
     Active Substance: CEFIXIME
     Dosage: 6 ML
     Route: 048

REACTIONS (5)
  - Neutropenia [Recovering/Resolving]
  - Decreased appetite [Recovering/Resolving]
  - Diarrhoea [Recovering/Resolving]
  - Pyrexia [Recovering/Resolving]
  - Off label use [Unknown]

NARRATIVE: CASE EVENT DATE: 20201102
